FAERS Safety Report 4483039-X (Version None)
Quarter: 2004Q3

REPORT INFORMATION
  Report Type: 
  Country: None (occurrence: None)
  Receive Date: 20040921
  Receipt Date: 20040511
  Transmission Date: 20050211
  Serious: Yes (Hospitalization)
  Sender: FDA-Public Use
  Company Number: 163-20785-04050277 (0)

PATIENT
  Age: 70 Year
  Sex: Female
  Weight: 63.05 kg

DRUGS (3)
  1. THALOMID [Suspect]
     Indication: OVARIAN CANCER
     Dosage: 50 MG QD DAYS 1-28 ORAL
     Route: 048
     Dates: start: 20040503, end: 20040509
  2. ETOPOSIDE [Suspect]
     Indication: OVARIAN CANCER
     Dosage: 50 MG QD DAYS 1-21 ORAL
     Route: 048
     Dates: start: 20040503, end: 20040509
  3. KYTRIL [Concomitant]

REACTIONS (2)
  - NAUSEA [None]
  - VOMITING [None]
